FAERS Safety Report 17893955 (Version 3)
Quarter: 2020Q3

REPORT INFORMATION
  Report Type: Spontaneous
  Country: FR (occurrence: FR)
  Receive Date: 20200615
  Receipt Date: 20200805
  Transmission Date: 20201103
  Serious: Yes (Other)
  Sender: FDA-Public Use
  Company Number: FR-AUROBINDO-AUR-APL-2020-028781

PATIENT
  Age: 64 Year
  Sex: Female

DRUGS (9)
  1. EMTRICITABINE AND TENOFOVIR [Interacting]
     Active Substance: EMTRICITABINE\TENOFOVIR
     Indication: HIV INFECTION
     Dosage: UNK
     Route: 065
  2. ATAZANAVIR. [Suspect]
     Active Substance: ATAZANAVIR
     Indication: HIV INFECTION
     Dosage: UNK
     Route: 065
  3. TENOFOVIR [Suspect]
     Active Substance: TENOFOVIR
  4. ATAZANAVIR. [Suspect]
     Active Substance: ATAZANAVIR
     Indication: HIV INFECTION
     Dosage: UNK
     Route: 065
  5. EMTRICITABINE [Suspect]
     Active Substance: EMTRICITABINE
  6. RITONAVIR. [Interacting]
     Active Substance: RITONAVIR
     Indication: HIV INFECTION
     Dosage: UNK
     Route: 065
  7. RITONAVIR. [Suspect]
     Active Substance: RITONAVIR
  8. EFAVIRENZ+EMTRICITABINE+TENOFOVIR [Interacting]
     Active Substance: EFAVIRENZ\EMTRICITABINE\TENOFOVIR DISOPROXIL FUMARATE
     Indication: HIV INFECTION
     Dosage: UNK
     Route: 065
  9. BUDESONIDE;FORMOTEROL [Interacting]
     Active Substance: BUDESONIDE\FORMOTEROL
     Indication: ASTHMA
     Dosage: UNK
     Route: 055

REACTIONS (2)
  - Cushing^s syndrome [Unknown]
  - Drug interaction [Unknown]
